FAERS Safety Report 6311899-6 (Version None)
Quarter: 2009Q3

REPORT INFORMATION
  Report Type: 
  Country: None (occurrence: None)
  Receive Date: 20090817
  Receipt Date: 20090812
  Transmission Date: 20100115
  Serious: Yes (Hospitalization)
  Sender: FDA-Public Use
  Company Number: US-BRISTOL-MYERS SQUIBB COMPANY-14739049

PATIENT
  Age: 23 Year
  Sex: Male
  Weight: 46 kg

DRUGS (18)
  1. REYATAZ [Suspect]
     Indication: HIV INFECTION
     Dosage: LAST DOSE TAKEN ON 7AUG09.
     Route: 048
     Dates: start: 20090728
  2. TRUVADA [Suspect]
     Indication: HIV INFECTION
     Dosage: LAST DOSE TAKEN ON 7AUG09. 1 DF= 200/300 MG OF EMTRICITABINE+TDF
     Route: 048
     Dates: start: 20090728
  3. ANDROGEL [Concomitant]
     Dosage: 1 DF = 1TUBE (5GR)
     Dates: start: 20090715
  4. HISTAMINE [Concomitant]
     Dosage: 1 DF = 2TABS FOR 14DAYS
     Dates: start: 20090730
  5. LOPERAMIDE HCL [Concomitant]
     Dosage: 1 DF = 1 CAP OF 2MG CAP
     Dates: start: 20090726
  6. METRONIDAZOLE [Concomitant]
     Dosage: 1 DF = 1 TAB FOR 14 DAYS, ALSO TAKEN ON 16JUL-25JUL09 500MG, 28JUL-5AUG09
     Dates: start: 20090716, end: 20090805
  7. MULTI-VITAMINS [Concomitant]
     Dates: start: 20090624
  8. NORVIR [Concomitant]
     Dosage: 1 DF = 1 CAP OF 100MG
     Dates: start: 20090728
  9. NITRATES [Concomitant]
     Dates: start: 20090728
  10. ONDANSETRON [Concomitant]
     Dosage: 1 DF = 1TAB
     Dates: start: 20090728
  11. PANTOPRAZOLE SODIUM [Concomitant]
     Dosage: 1 DF = 1 TAB
  12. PREPARATION H [Concomitant]
     Dates: start: 20090715
  13. SELSUN BLUE [Concomitant]
     Dates: start: 20090621
  14. SULFAMETHIZOLE TAB [Concomitant]
     Dosage: 1 DF = 1 TAB OF 100MG
     Dates: start: 20090627
  15. TETRACYCLINE HCL [Concomitant]
     Dosage: 1 DF = 1 TAB OF 500MG
     Dates: start: 20090710
  16. TUBERSOL [Concomitant]
     Route: 023
     Dates: start: 20090624, end: 20090624
  17. FLUCONAZOLE [Concomitant]
     Dosage: 1 DF = 2TAB ON DAY 1 AND 1TAB ON DAY 2
     Dates: start: 20090626, end: 20090728
  18. OMEPRAZOLE [Concomitant]
     Dosage: 1 DF = 1 CAP
     Dates: start: 20090720, end: 20090728

REACTIONS (1)
  - PNEUMONIA [None]
